FAERS Safety Report 4481872-1 (Version None)
Quarter: 2004Q4

REPORT INFORMATION
  Report Type: 
  Country: None (occurrence: None)
  Receive Date: 20041020
  Receipt Date: 20041013
  Transmission Date: 20050328
  Serious: Yes (Death, Hospitalization)
  Sender: FDA-Public Use
  Company Number: ES-2004-033500

PATIENT
  Age: 86 Year
  Sex: Female
  Weight: 75 kg

DRUGS (2)
  1. CAMPATH [Suspect]
     Indication: MYCOSIS FUNGOIDES
     Dosage: 3 MG, 1X/DAY, INTRAVENOUS
     Route: 042
     Dates: start: 20040119, end: 20040119
  2. VALTREX [Suspect]
     Indication: PROPHYLACTIC CHEMOTHERAPY
     Dosage: 500 MG, 1X/DAY, ORAL
     Route: 048
     Dates: start: 20040119, end: 20040119

REACTIONS (4)
  - CONDITION AGGRAVATED [None]
  - CONFUSIONAL STATE [None]
  - MENINGITIS ASEPTIC [None]
  - RENAL FAILURE [None]
